FAERS Safety Report 6831900-0 (Version None)
Quarter: 2010Q3

REPORT INFORMATION
  Report Type: 
  Country: None (occurrence: None)
  Receive Date: 20100712
  Receipt Date: 20100630
  Transmission Date: 20110219
  Serious: Yes (Hospitalization)
  Sender: FDA-Public Use
  Company Number: US-WYE-H15958510

PATIENT
  Sex: Female
  Weight: 59.02 kg

DRUGS (8)
  1. EFFEXOR XR [Suspect]
     Indication: BIPOLAR DISORDER
     Dosage: ^78.75^ MG BID
     Route: 048
     Dates: start: 20051101
  2. EFFEXOR XR [Suspect]
     Dosage: ^INCREASED TO A HIGHEST DOSE OF 245 MG^
  3. EFFEXOR XR [Suspect]
  4. VICODIN [Concomitant]
  5. VALIUM [Concomitant]
     Dosage: UNKNOWN
  6. TRAZODONE [Concomitant]
     Dosage: UNKNOWN
  7. XANAX [Concomitant]
     Dosage: UNKNOWN
  8. KLONOPIN [Concomitant]
     Dosage: UNKNOWN

REACTIONS (3)
  - DRUG INEFFECTIVE FOR UNAPPROVED INDICATION [None]
  - NERVOUSNESS [None]
  - NONSPECIFIC REACTION [None]
